FAERS Safety Report 5147276-3 (Version None)
Quarter: 2006Q4

REPORT INFORMATION
  Report Type: 
  Country: None (occurrence: None)
  Receive Date: 20061103
  Receipt Date: 20061023
  Transmission Date: 20070319
  Serious: Yes (Hospitalization, Other)
  Sender: FDA-Public Use
  Company Number: 2006129741

PATIENT
  Age: 60 Year
  Sex: Female
  Weight: 84.8226 kg

DRUGS (2)
  1. LIPITOR [Suspect]
     Indication: BLOOD CHOLESTEROL INCREASED
     Dosage: (2 IN 1 D) ,ORAL
     Route: 048
     Dates: start: 20010101, end: 20040101
  2. DIOVAN [Concomitant]

REACTIONS (6)
  - FLATULENCE [None]
  - IMMOBILE [None]
  - INSOMNIA [None]
  - LIVER DISORDER [None]
  - MUSCLE SPASMS [None]
  - PAIN IN EXTREMITY [None]
